FAERS Safety Report 8013883-3 (Version None)
Quarter: 2011Q4

REPORT INFORMATION
  Report Type: 
  Country: None (occurrence: None)
  Receive Date: 20111229
  Receipt Date: 20111221
  Transmission Date: 20120403
  Serious: Yes (Other)
  Sender: FDA-Public Use
  Company Number: FR-ROCHE-1024268

PATIENT
  Sex: Female

DRUGS (4)
  1. MABTHERA [Suspect]
     Dates: start: 20111110
  2. MABTHERA [Suspect]
     Route: 042
     Dates: start: 20111118, end: 20111118
  3. MABTHERA [Suspect]
     Dosage: 4 INFUSIONS
     Dates: start: 20090501
  4. MABTHERA [Suspect]
     Indication: PRODUCT USED FOR UNKNOWN INDICATION
     Dosage: 4 INFUSIONS
     Route: 042
     Dates: start: 20081101

REACTIONS (2)
  - THROMBOCYTOPENIA [None]
  - PROTHROMBIN LEVEL DECREASED [None]
